FAERS Safety Report 9685336 (Version 2)
Quarter: 2014Q1

REPORT INFORMATION
  Report Type: Report from Study
  Country: US (occurrence: US)
  Receive Date: 20131113
  Receipt Date: 20140127
  Transmission Date: 20141002
  Serious: Yes (Hospitalization, Other)
  Sender: FDA-Public Use
  Company Number: PHEH2013US023642

PATIENT
  Age: 75 Year
  Sex: Male
  Weight: 72 kg

DRUGS (14)
  1. TOBI [Suspect]
     Dosage: 300 MG, BID
     Route: 055
  2. ALBUTEROL [Concomitant]
     Dosage: UNK UKN, BID
     Route: 055
  3. ALBUTEROL [Concomitant]
     Dosage: UNK UKN, TID
     Route: 055
  4. ALBUTEROL [Concomitant]
     Dosage: UNK UKN, PRN
     Route: 055
  5. BROVANA [Concomitant]
     Dosage: UNK UKN, BID
     Route: 055
  6. PULMICORT [Concomitant]
     Dosage: UNK UKN, BID
     Route: 055
  7. ADDITIVA CALCIUM [Concomitant]
     Dosage: 600 MG, BID
  8. VIT B12 [Concomitant]
     Dosage: 1 MG, QD
  9. VIT D [Concomitant]
     Dosage: 1 DF, QD
  10. BIO FOLIC ACID [Concomitant]
     Dosage: 2 DF, QD
  11. BONIVA [Concomitant]
     Dosage: 15 MG, QMO
  12. LEVAQUIN [Concomitant]
     Dosage: 750 MG, QD
  13. METFORMIN [Concomitant]
     Dosage: 1 G, BID
  14. VITAMIN B6 [Concomitant]
     Dosage: 1 DF, BID

REACTIONS (9)
  - Chronic obstructive pulmonary disease [Recovered/Resolved]
  - Gastrointestinal disorder [Unknown]
  - Liver disorder [Unknown]
  - Bronchiectasis [Unknown]
  - Bronchitis [Unknown]
  - Pneumonia pseudomonal [Unknown]
  - Lymphoma [Unknown]
  - Pyrexia [Unknown]
  - Productive cough [Recovered/Resolved]
